FAERS Safety Report 20829745 (Version 5)
Quarter: 2022Q3

REPORT INFORMATION
  Report Type: Report from Study
  Country: US (occurrence: US)
  Receive Date: 20220513
  Receipt Date: 20220831
  Transmission Date: 20221026
  Serious: No
  Sender: FDA-Public Use
  Company Number: US-NOVARTISTESTPH-NVSC2022US111311

PATIENT
  Sex: Male

DRUGS (1)
  1. PROMACTA [Suspect]
     Active Substance: ELTROMBOPAG OLAMINE
     Indication: Immune thrombocytopenia
     Dosage: UNK (NOW ON DAILY DOSE WAS TAKING EVERY OTHER DAY)
     Route: 065

REACTIONS (4)
  - Pain in extremity [Unknown]
  - Platelet count abnormal [Unknown]
  - Nausea [Unknown]
  - Inappropriate schedule of product administration [Unknown]
